FAERS Safety Report 11625946 (Version 1)
Quarter: 2015Q4

REPORT INFORMATION
  Report Type: Spontaneous
  Country: GB (occurrence: GB)
  Receive Date: 20151013
  Receipt Date: 20151013
  Transmission Date: 20160304
  Serious: Yes (Other)
  Sender: FDA-Public Use
  Company Number: GB-CELGENE-GBR-2015101581

PATIENT

DRUGS (2)
  1. REVLIMID [Suspect]
     Active Substance: LENALIDOMIDE
     Indication: MYELODYSPLASTIC SYNDROME
     Route: 048
  2. ISTODAX [Suspect]
     Active Substance: ROMIDEPSIN
     Indication: LYMPHOMA
     Route: 041

REACTIONS (1)
  - Adverse event [Unknown]
